FAERS Safety Report 7152579-7 (Version None)
Quarter: 2010Q4

REPORT INFORMATION
  Report Type: 
  Country: None (occurrence: None)
  Receive Date: 20101209
  Receipt Date: 20101209
  Transmission Date: 20110411
  Serious: Yes (Hospitalization)
  Sender: FDA-Public Use
  Company Number: None

PATIENT
  Sex: Female
  Weight: 72.7 kg

DRUGS (1)
  1. VENOFER [Suspect]
     Indication: IRON DEFICIENCY ANAEMIA
     Dosage: SINGLE USE
     Dates: start: 20101129

REACTIONS (8)
  - ABDOMINAL PAIN [None]
  - BLOOD PRESSURE ABNORMAL [None]
  - DIARRHOEA [None]
  - DIZZINESS [None]
  - NAUSEA [None]
  - SYNCOPE [None]
  - TINNITUS [None]
  - VOMITING [None]
